FAERS Safety Report 7558509-8 (Version None)
Quarter: 2011Q2

REPORT INFORMATION
  Report Type: 
  Country: None (occurrence: None)
  Receive Date: 20110620
  Receipt Date: 20110608
  Transmission Date: 20111010
  Serious: Yes (Hospitalization)
  Sender: FDA-Public Use
  Company Number: US-CELGENEUS-163-21880-11061460

PATIENT
  Sex: Female
  Weight: 91.254 kg

DRUGS (2)
  1. MELPHALAN HYDROCHLORIDE [Concomitant]
     Indication: PREMEDICATION
     Route: 065
  2. REVLIMID [Suspect]
     Indication: MULTIPLE MYELOMA
     Dosage: 10 MILLIGRAM
     Route: 048
     Dates: start: 20110101, end: 20110501

REACTIONS (3)
  - SEPSIS [None]
  - NEUTROPENIA [None]
  - HYPOVOLAEMIA [None]
